FAERS Safety Report 19044794 (Version 1)
Quarter: 2021Q1

REPORT INFORMATION
  Report Type: Spontaneous
  Country: RS (occurrence: RS)
  Receive Date: 20210322
  Receipt Date: 20210322
  Transmission Date: 20210420
  Serious: Yes (Other)
  Sender: FDA-Public Use
  Company Number: RS-PFIZER INC-2021293960

PATIENT
  Age: 57 Year
  Sex: Male

DRUGS (4)
  1. TIVORAL [Concomitant]
     Active Substance: LEVOTHYROXINE SODIUM
     Dosage: UNK
  2. HYDROCORTISONE. [Concomitant]
     Active Substance: HYDROCORTISONE
     Dosage: UNK
  3. TESTOSTERONE ENANTATE [Concomitant]
     Active Substance: TESTOSTERONE
     Dosage: UNK
  4. CABERGOLINE. [Suspect]
     Active Substance: CABERGOLINE
     Indication: HYPOTHALAMO-PITUITARY DISORDER
     Dosage: UNK

REACTIONS (1)
  - Meningeal neoplasm [Unknown]

NARRATIVE: CASE EVENT DATE: 20210227
